FAERS Safety Report 8123321-8 (Version None)
Quarter: 2012Q1

REPORT INFORMATION
  Report Type: 
  Country: None (occurrence: None)
  Receive Date: 20120208
  Receipt Date: 20120131
  Transmission Date: 20120608
  Serious: Yes (Other)
  Sender: FDA-Public Use
  Company Number: US-ROCHE-784902

PATIENT
  Sex: Male
  Weight: 102.15 kg

DRUGS (3)
  1. ACCUTANE [Suspect]
     Route: 065
     Dates: start: 20000429, end: 20000703
  2. ACCUTANE [Suspect]
     Dates: start: 20010630, end: 20011023
  3. ACCUTANE [Suspect]
     Indication: ACNE
     Route: 065
     Dates: start: 20000201, end: 20000306

REACTIONS (4)
  - CROHN'S DISEASE [None]
  - STRESS [None]
  - ANXIETY [None]
  - INFLAMMATORY BOWEL DISEASE [None]
